FAERS Safety Report 9918631 (Version 2)
Quarter: 2014Q1

REPORT INFORMATION
  Report Type: Spontaneous
  Country: US (occurrence: US)
  Receive Date: 20140224
  Receipt Date: 20140310
  Transmission Date: 20141002
  Serious: Yes (Other)
  Sender: FDA-Public Use
  Company Number: US-AMGEN-USASP2014011617

PATIENT
  Age: 41 Year
  Sex: Male

DRUGS (1)
  1. ARANESP [Suspect]
     Indication: DIALYSIS
     Dosage: UNK UNK, 3 TIMES/WK
     Route: 065

REACTIONS (5)
  - Myocardial infarction [Unknown]
  - Haemoglobin decreased [Unknown]
  - Arrhythmia [Unknown]
  - Drug ineffective [Unknown]
  - Parathyroid disorder [Unknown]
